FAERS Safety Report 16011748 (Version 2)
Quarter: 2019Q1

REPORT INFORMATION
  Report Type: Spontaneous
  Country: US (occurrence: US)
  Receive Date: 20190227
  Receipt Date: 20190304
  Transmission Date: 20190418
  Serious: No
  Sender: FDA-Public Use
  Company Number: US-PFIZER INC-2019082325

PATIENT
  Sex: Female

DRUGS (1)
  1. XELJANZ XR [Suspect]
     Active Substance: TOFACITINIB CITRATE
     Indication: RHEUMATOID ARTHRITIS
     Dosage: UNK

REACTIONS (8)
  - Gingival disorder [Unknown]
  - Gait disturbance [Unknown]
  - Rash [Unknown]
  - Fatigue [Unknown]
  - Pollakiuria [Unknown]
  - Hypersomnia [Unknown]
  - Dyspnoea [Unknown]
  - Drug ineffective [Unknown]
